FAERS Safety Report 9119336 (Version 1)
Quarter: 2013Q1

REPORT INFORMATION
  Report Type: Spontaneous
  Country: US (occurrence: None)
  Receive Date: 20130221
  Receipt Date: 20130221
  Transmission Date: 20140127
  Serious: No
  Sender: FDA-Public Use
  Company Number: None

PATIENT
  Age: 3 Day
  Sex: Male
  Weight: 1 kg

DRUGS (13)
  1. GENTAMICIN [Suspect]
     Indication: INFECTION
     Dosage: 5 MG Q2DAYS IV BOLUS
     Route: 040
     Dates: start: 20130202, end: 20130212
  2. AMPICILLIN [Concomitant]
  3. ATROPINE [Concomitant]
  4. CAFFEINE [Concomitant]
  5. DOBUTAMINE DRIP [Concomitant]
  6. DOPAMINE DRIP [Concomitant]
  7. EPINEPHRINE DRIP [Concomitant]
  8. FENTANYL [Concomitant]
  9. HYDROCORTISONE [Concomitant]
  10. HEPARIN DRIP [Concomitant]
  11. ROCURONIUM [Concomitant]
  12. TPN [Concomitant]
  13. VITAMIN K [Concomitant]

REACTIONS (1)
  - Drug level decreased [None]
